FAERS Safety Report 10134174 (Version 1)
Quarter: 2014Q2

REPORT INFORMATION
  Report Type: Spontaneous
  Country: US (occurrence: US)
  Receive Date: 20140428
  Receipt Date: 20140428
  Transmission Date: 20141212
  Serious: No
  Sender: FDA-Public Use
  Company Number: US-SANOFI-AVENTIS-2013SA075738

PATIENT
  Age: 68 Year
  Sex: Female

DRUGS (4)
  1. ALLEGRA [Suspect]
     Indication: SEASONAL ALLERGY
     Dosage: PRODUCT STARTED QUITE SOME TIME AGO
     Route: 048
  2. ALLEGRA [Suspect]
     Indication: SINUS DISORDER
     Dosage: PRODUCT STARTED QUITE SOME TIME AGO
     Route: 048
  3. ALLEGRA [Suspect]
     Indication: SEASONAL ALLERGY
     Route: 048
     Dates: end: 201307
  4. ALLEGRA [Suspect]
     Indication: SINUS DISORDER
     Route: 048
     Dates: end: 201307

REACTIONS (1)
  - Pollakiuria [Unknown]
